FAERS Safety Report 24548785 (Version 2)
Quarter: 2024Q4

REPORT INFORMATION
  Report Type: Spontaneous
  Country: US (occurrence: US)
  Receive Date: 20241025
  Receipt Date: 20241127
  Transmission Date: 20250114
  Serious: No
  Sender: Kenvue
  Company Number: US-KENVUE-20241027448

PATIENT
  Age: 29 Year
  Sex: Male

DRUGS (2)
  1. MENS ROGAINE EXTRA STRENGTH [Suspect]
     Active Substance: MINOXIDIL
     Indication: Androgenetic alopecia
     Dosage: HALF CAPFUL
     Route: 061
     Dates: start: 20240928
  2. MENS ROGAINE EXTRA STRENGTH [Suspect]
     Active Substance: MINOXIDIL
     Dosage: HALF CAPFUL
     Route: 061
     Dates: start: 2024

REACTIONS (5)
  - Adverse event [Recovering/Resolving]
  - Application site erythema [Recovering/Resolving]
  - Sensitive skin [Recovering/Resolving]
  - Product use in unapproved indication [Unknown]
  - Product administered at inappropriate site [Unknown]

NARRATIVE: CASE EVENT DATE: 20240928
